FAERS Safety Report 7629395-2 (Version None)
Quarter: 2011Q3

REPORT INFORMATION
  Report Type: 
  Country: None (occurrence: None)
  Receive Date: 20110722
  Receipt Date: 20110713
  Transmission Date: 20111222
  Serious: Yes (Other)
  Sender: FDA-Public Use
  Company Number: US-JNJFOC-20110705812

PATIENT
  Age: 39 Year
  Sex: Female

DRUGS (2)
  1. LYSTEDA [Suspect]
     Indication: PRODUCT USED FOR UNKNOWN INDICATION
     Dates: start: 20110531, end: 20110604
  2. IBUPROFEN [Suspect]
     Indication: HEADACHE
     Route: 048
     Dates: start: 20110607

REACTIONS (2)
  - ANAPHYLACTIC SHOCK [None]
  - DRUG INEFFECTIVE [None]
